FAERS Safety Report 10881942 (Version 1)
Quarter: 2015Q1

REPORT INFORMATION
  Report Type: Spontaneous
  Country: IT (occurrence: IT)
  Receive Date: 20150303
  Receipt Date: 20150303
  Transmission Date: 20150721
  Serious: Yes (Other)
  Sender: FDA-Public Use
  Company Number: IT-GLAXOSMITHKLINE-K201411495

PATIENT
  Sex: Male
  Weight: 67 kg

DRUGS (16)
  1. FENTANYL HAMELN [Concomitant]
     Indication: PAIN
     Route: 062
     Dates: start: 20110829, end: 20140411
  2. NITRODERM [Concomitant]
     Active Substance: NITROGLYCERIN
     Indication: PRODUCT USED FOR UNKNOWN INDICATION
     Route: 062
     Dates: start: 20130201, end: 20140411
  3. BISOPROLOL HEMIFUMARATE [Concomitant]
     Active Substance: BISOPROLOL FUMARATE
     Indication: HYPERTENSION
     Route: 048
     Dates: start: 20030101, end: 20140411
  4. RAMIPRIL. [Concomitant]
     Active Substance: RAMIPRIL
     Indication: HYPERTENSION
     Route: 048
     Dates: start: 20030101, end: 20140411
  5. REVLIMID [Suspect]
     Active Substance: LENALIDOMIDE
     Indication: PLASMA CELL MYELOMA
     Route: 048
     Dates: start: 20130715, end: 20140404
  6. CALCIUM SANDOZ [Concomitant]
     Active Substance: CALCIUM
     Indication: HYPOCALCAEMIA
     Route: 048
     Dates: start: 20130918, end: 20140411
  7. LEVOXACIN [Concomitant]
     Active Substance: LEVOFLOXACIN
     Indication: COUGH
     Route: 048
     Dates: start: 20140410, end: 20140411
  8. DEXAMETHASONE SODIUM PHOSPHATE. [Concomitant]
     Active Substance: DEXAMETHASONE SODIUM PHOSPHATE
     Indication: PLASMA CELL MYELOMA
     Route: 048
     Dates: start: 20130715, end: 20140411
  9. DIBASE [Concomitant]
     Active Substance: CHOLECALCIFEROL
     Indication: HYPOVITAMINOSIS
     Route: 048
     Dates: start: 20130212, end: 20140411
  10. NO DRUG NAME [Concomitant]
     Indication: HYPERCHOLESTEROLAEMIA
     Route: 048
     Dates: start: 20030201, end: 20140411
  11. OMEPRAZOLE. [Concomitant]
     Active Substance: OMEPRAZOLE
     Indication: PRODUCT USED FOR UNKNOWN INDICATION
     Route: 048
     Dates: start: 20130212, end: 20140411
  12. MELPHALAN [Suspect]
     Active Substance: MELPHALAN
     Indication: PLASMA CELL MYELOMA
     Route: 048
     Dates: start: 20110829, end: 20120331
  13. VELCADE [Suspect]
     Active Substance: BORTEZOMIB
     Indication: PLASMA CELL MYELOMA
     Route: 058
     Dates: start: 20130212, end: 20130507
  14. FINASTERIDE. [Concomitant]
     Active Substance: FINASTERIDE
     Indication: BENIGN PROSTATIC HYPERPLASIA
     Route: 048
     Dates: start: 20030201, end: 20140411
  15. FOLIN [Concomitant]
     Indication: PRODUCT USED FOR UNKNOWN INDICATION
     Route: 065
     Dates: start: 20130212, end: 20140411
  16. ASCRIPTIN [Concomitant]
     Active Substance: ASPIRIN
     Indication: HYPERTENSION
     Route: 048
     Dates: start: 20030101, end: 20140411

REACTIONS (2)
  - Neoplasm malignant [None]
  - Metastasis [None]
